FAERS Safety Report 9285142 (Version 5)
Quarter: 2013Q4

REPORT INFORMATION
  Report Type: Spontaneous
  Country: US (occurrence: US)
  Receive Date: 20130513
  Receipt Date: 20131031
  Transmission Date: 20140711
  Serious: Yes (Other)
  Sender: FDA-Public Use
  Company Number: US-009507513-1305USA006534

PATIENT
  Sex: Male
  Weight: 242.8 kg

DRUGS (11)
  1. PEGINTRON [Suspect]
     Indication: HEPATITIS C
     Dosage: REDIPEN 150 MICROGRAM, QW
     Route: 058
     Dates: start: 20130422
  2. RIBAPAK [Suspect]
     Indication: HEPATITIS C
     Dosage: 600 MG, BID
     Route: 048
     Dates: start: 20130422
  3. VICTRELIS [Suspect]
     Indication: HEPATITIS C
     Dosage: 800 MG, TID
     Dates: start: 20130528
  4. AMLODIPINE [Concomitant]
     Dosage: 5 MG, QD
  5. DULCOLAX [Concomitant]
     Dosage: 1 TABLET AS NEEDED
     Route: 048
  6. HYDROCHLOROTHIAZIDE [Concomitant]
     Dosage: 25 MG, QD
  7. HYDROCORTISONE VALERATE [Concomitant]
     Dosage: 0.2 %, AS DIRECTED
  8. OXYCODONE [Concomitant]
     Dosage: 5 MG, QD
     Route: 048
  9. TOVIAZ [Concomitant]
     Dosage: 8 MG, QD
     Route: 048
  10. MAXITROL [Concomitant]
     Dosage: UNK, TID
  11. RIFAMPIN [Suspect]
     Indication: HEPATITIS C

REACTIONS (18)
  - Optic nerve disorder [Not Recovered/Not Resolved]
  - Injection site reaction [Unknown]
  - Pruritus [Not Recovered/Not Resolved]
  - Dry mouth [Not Recovered/Not Resolved]
  - Fatigue [Unknown]
  - Constipation [Unknown]
  - Nausea [Unknown]
  - Dizziness [Unknown]
  - Migraine [Unknown]
  - Anophthalmos [Unknown]
  - Retinopathy [Unknown]
  - Arthralgia [Unknown]
  - Dizziness [Unknown]
  - Hyperaemia [Unknown]
  - Headache [Unknown]
  - Blood count abnormal [Unknown]
  - Optic nerve disorder [Unknown]
  - Fatigue [Unknown]
